FAERS Safety Report 5267310-X (Version None)
Quarter: 2007Q1

REPORT INFORMATION
  Report Type: 
  Country: None (occurrence: None)
  Receive Date: 20070316
  Receipt Date: 20070314
  Transmission Date: 20070707
  Serious: Yes (Other)
  Sender: FDA-Public Use
  Company Number: JP-JPN-A200700990

PATIENT
  Age: 75 Year
  Sex: Female

DRUGS (7)
  1. RELENZA [Suspect]
     Indication: INFLUENZA
     Dosage: 10MG TWICE PER DAY
     Route: 055
     Dates: start: 20070301, end: 20070302
  2. LIVALO [Concomitant]
     Route: 048
  3. HALCION [Concomitant]
     Route: 048
  4. PROTECADIN [Concomitant]
     Route: 048
  5. TOMIRON [Concomitant]
     Route: 048
  6. DASEN [Concomitant]
     Route: 048
  7. MUCOSTA [Concomitant]
     Route: 048

REACTIONS (2)
  - ABNORMAL DREAMS [None]
  - HALLUCINATION [None]
